FAERS Safety Report 18187900 (Version 2)
Quarter: 2020Q3

REPORT INFORMATION
  Report Type: Spontaneous
  Country: US (occurrence: US)
  Receive Date: 20200824
  Receipt Date: 20200925
  Transmission Date: 20201103
  Serious: No
  Sender: FDA-Public Use
  Company Number: US-ELI_LILLY_AND_COMPANY-US202008008671

PATIENT
  Age: 61 Year
  Sex: Male

DRUGS (15)
  1. HUMALOG [Suspect]
     Active Substance: INSULIN LISPRO
     Dosage: 30 U, DAILY(AT LUNCH)
     Route: 065
     Dates: start: 2017
  2. HUMALOG [Suspect]
     Active Substance: INSULIN LISPRO
     Dosage: 40 U, DAILY(AT NIGHT)
     Route: 065
     Dates: start: 2017
  3. LISINOPRIL. [Concomitant]
     Active Substance: LISINOPRIL
     Indication: BLOOD PRESSURE ABNORMAL
  4. HUMALOG [Suspect]
     Active Substance: INSULIN LISPRO
     Indication: DIABETES MELLITUS
     Dosage: 30 U, EACH MORNING
     Route: 065
     Dates: start: 2017
  5. HUMALOG [Suspect]
     Active Substance: INSULIN LISPRO
     Indication: DIABETES MELLITUS
     Dosage: 30 U, EACH MORNING
     Route: 065
     Dates: start: 2017
  6. AMLODIPINE [Concomitant]
     Active Substance: AMLODIPINE BESYLATE
     Indication: PRODUCT USED FOR UNKNOWN INDICATION
  7. METFORMIN [Concomitant]
     Active Substance: METFORMIN HYDROCHLORIDE
     Indication: DIABETES MELLITUS
     Dosage: UNK UNK, UNKNOWN
     Route: 065
  8. CARVEDILOL. [Concomitant]
     Active Substance: CARVEDILOL
     Indication: BLOOD PRESSURE ABNORMAL
  9. HUMALOG [Suspect]
     Active Substance: INSULIN LISPRO
     Dosage: 30 U, DAILY(AT LUNCH)
     Route: 065
     Dates: start: 2017
  10. HUMALOG [Suspect]
     Active Substance: INSULIN LISPRO
     Dosage: 30 U, BID(BREAKFAST AND LUNCH)
     Route: 065
  11. HUMALOG [Suspect]
     Active Substance: INSULIN LISPRO
     Dosage: 40 U, DAILY(AT NIGHT)
     Route: 065
     Dates: start: 2017
  12. HUMALOG [Suspect]
     Active Substance: INSULIN LISPRO
     Dosage: 30 U, BID(BREAKFAST AND LUNCH)
     Route: 065
  13. HUMALOG [Suspect]
     Active Substance: INSULIN LISPRO
     Dosage: 40 U, DAILY(NIGHT)
     Route: 065
  14. HUMALOG [Suspect]
     Active Substance: INSULIN LISPRO
     Dosage: 40 U, DAILY(NIGHT)
     Route: 065
  15. CYMBALTA [Concomitant]
     Active Substance: DULOXETINE HYDROCHLORIDE
     Indication: PRODUCT USED FOR UNKNOWN INDICATION

REACTIONS (2)
  - Blood glucose increased [Unknown]
  - Memory impairment [Unknown]

NARRATIVE: CASE EVENT DATE: 20200820
